FAERS Safety Report 8973703 (Version 1)
Quarter: 2012Q4

REPORT INFORMATION
  Report Type: 
  Country: JP (occurrence: JP)
  Receive Date: 20121219
  Receipt Date: 20121219
  Transmission Date: 20130627
  Serious: Yes (Other)
  Sender: FDA-Public Use
  Company Number: JP-NAPPMUNDI-GBR-2012-0012031

PATIENT
  Age: 78 Year
  Sex: Male

DRUGS (3)
  1. BUPRENORPHINE TRANSDERMAL SYSTEM 5 MG [Suspect]
     Indication: ANALGESIC THERAPY
     Dosage: 5 mcg, q1h
     Route: 062
     Dates: start: 20121018, end: 20121020
  2. LYRICA [Concomitant]
     Indication: ANALGESIC THERAPY
     Dosage: 150 mg, daily
     Route: 048
     Dates: start: 20120926
  3. LOXOPROFEN [Concomitant]
     Indication: ANALGESIC THERAPY
     Dosage: 180 mg, daily
     Route: 048
     Dates: start: 20120918

REACTIONS (3)
  - Choking sensation [Recovered/Resolved]
  - Chest discomfort [Recovered/Resolved]
  - Headache [Recovered/Resolved]
